FAERS Safety Report 7530198-8 (Version None)
Quarter: 2011Q2

REPORT INFORMATION
  Report Type: 
  Country: None (occurrence: None)
  Receive Date: 20110607
  Receipt Date: 20110527
  Transmission Date: 20111010
  Serious: Yes (Other)
  Sender: FDA-Public Use
  Company Number: A0929463A

PATIENT
  Age: 50 Year
  Sex: Female

DRUGS (1)
  1. NICODERM CQ [Suspect]
     Indication: SMOKING CESSATION THERAPY
     Route: 062
     Dates: start: 20110523, end: 20110527

REACTIONS (5)
  - NAUSEA [None]
  - MALAISE [None]
  - ABDOMINAL DISTENSION [None]
  - TOBACCO POISONING [None]
  - DIARRHOEA [None]
